FAERS Safety Report 6168939-7 (Version None)
Quarter: 2009Q2

REPORT INFORMATION
  Report Type: 
  Country: None (occurrence: None)
  Receive Date: 20090424
  Receipt Date: 20090424
  Transmission Date: 20091009
  Serious: Yes (Other)
  Sender: FDA-Public Use
  Company Number: None

PATIENT
  Sex: Female
  Weight: 121.1104 kg

DRUGS (2)
  1. VENOFER [Suspect]
     Indication: IRON DEFICIENCY
     Dosage: 333 MG X 3 DOSES IV DRIP
     Route: 041
     Dates: start: 20090415, end: 20090421
  2. VENOFER [Suspect]
     Indication: MENORRHAGIA
     Dosage: 333 MG X 3 DOSES IV DRIP
     Route: 041
     Dates: start: 20090415, end: 20090421

REACTIONS (5)
  - BLOOD PRESSURE INCREASED [None]
  - FLUSHING [None]
  - PRURITUS [None]
  - RESPIRATORY RATE INCREASED [None]
  - SKIN TIGHTNESS [None]
